FAERS Safety Report 5008424-9 (Version None)
Quarter: 2006Q2

REPORT INFORMATION
  Report Type: 
  Country: None (occurrence: None)
  Receive Date: 20060518
  Receipt Date: 20060426
  Transmission Date: 20061013
  Serious: Yes (Life-Threatening, Hospitalization)
  Sender: FDA-Public Use
  Company Number: GB200604000353

PATIENT
  Age: 30 Year
  Sex: Male

DRUGS (5)
  1. CIALIS [Suspect]
     Indication: ERECTILE DYSFUNCTION
     Dosage: 10 MG, ORAL
     Route: 048
     Dates: start: 20060310, end: 20060330
  2. SERTRALINE HCL [Concomitant]
  3. ESCITALOPRAM OXALATE [Concomitant]
  4. SALBUTAMOL [Concomitant]
  5. BECONASE [Concomitant]

REACTIONS (3)
  - OEDEMA PERIPHERAL [None]
  - SUICIDAL IDEATION [None]
  - SUICIDE ATTEMPT [None]
